FAERS Safety Report 6192604-3 (Version None)
Quarter: 2009Q2

REPORT INFORMATION
  Report Type: 
  Country: None (occurrence: None)
  Receive Date: 20090518
  Receipt Date: 20090508
  Transmission Date: 20091009
  Serious: Yes (Death, Other)
  Sender: FDA-Public Use
  Company Number: GB-AMGEN-US331027

PATIENT
  Sex: Female
  Weight: 102 kg

DRUGS (11)
  1. ENBREL [Suspect]
     Indication: RHEUMATOID ARTHRITIS
     Route: 058
     Dates: start: 20041201
  2. METHOTREXATE [Concomitant]
     Route: 065
  3. PREDNISOLONE [Concomitant]
     Dosage: UNKNOWN
     Route: 065
  4. ETORICOXIB [Concomitant]
     Dosage: UNKNOWN
     Route: 065
  5. METFORMIN HCL [Concomitant]
     Route: 065
  6. FOLIC ACID [Concomitant]
     Route: 065
  7. FUROSEMIDE [Concomitant]
     Dosage: UNKNOWN
     Route: 065
  8. ACETAMINOPHEN W/ CODEINE [Concomitant]
     Dosage: 2 TABLETS AS NEEDED
     Route: 065
  9. MELOXICAM [Concomitant]
     Dosage: 7.5 MG AS NEEDED
     Route: 065
  10. SULFASALAZINE [Concomitant]
     Route: 065
  11. ATORVASTATIN [Concomitant]
     Route: 065

REACTIONS (2)
  - PNEUMONIA [None]
  - SMALL CELL LUNG CANCER STAGE UNSPECIFIED [None]
